FAERS Safety Report 12439862 (Version 1)
Quarter: 2016Q2

REPORT INFORMATION
  Report Type: Spontaneous
  Country: CH (occurrence: CH)
  Receive Date: 20160606
  Receipt Date: 20160606
  Transmission Date: 20160815
  Serious: Yes (Hospitalization)
  Sender: FDA-Public Use
  Company Number: CH-TEVA-663687ISR

PATIENT
  Age: 88 Year
  Sex: Male

DRUGS (20)
  1. BELOC ZOK [Suspect]
     Active Substance: METOPROLOL SUCCINATE
     Indication: CARDIAC FAILURE
     Dosage: 50 MILLIGRAM DAILY;
     Route: 048
     Dates: start: 20130228, end: 20130305
  2. BELOC ZOK [Suspect]
     Active Substance: METOPROLOL SUCCINATE
     Dosage: 25 MILLIGRAM DAILY;
     Route: 048
     Dates: start: 20130305, end: 20130306
  3. METFIN [Concomitant]
     Active Substance: METFORMIN HYDROCHLORIDE
     Indication: PRODUCT USED FOR UNKNOWN INDICATION
     Dosage: 2000 MILLIGRAM DAILY; LONG TERM TREATMENT
     Route: 048
  4. IRFEN [Suspect]
     Active Substance: IBUPROFEN
     Indication: PRODUCT USED FOR UNKNOWN INDICATION
     Dosage: 1200 MILLIGRAM DAILY; 1-0-1, DOSE AS REPORTED 2X400-600MG/D
     Route: 048
     Dates: start: 201309, end: 201310
  5. SINTROM [Suspect]
     Active Substance: ACENOCOUMAROL
     Indication: ATRIAL FIBRILLATION
     Dosage: 2 MILLIGRAM DAILY;
     Route: 048
     Dates: start: 20130227, end: 20130228
  6. BELOC ZOK [Suspect]
     Active Substance: METOPROLOL SUCCINATE
     Dosage: 12.5 MILLIGRAM DAILY;
     Route: 048
     Dates: start: 20130306, end: 20130307
  7. ALDACTONE [Concomitant]
     Active Substance: SPIRONOLACTONE
     Indication: PRODUCT USED FOR UNKNOWN INDICATION
     Dosage: 25 MILLIGRAM DAILY;
     Route: 048
  8. VI-DE 3 [Concomitant]
     Active Substance: CHOLECALCIFEROL
     Dosage: 20 GTT DAILY;
     Route: 048
  9. COSAAR [Suspect]
     Active Substance: LOSARTAN POTASSIUM
     Indication: PRODUCT USED FOR UNKNOWN INDICATION
     Dosage: 25 MILLIGRAM DAILY; LONG TERM TREATMENT
     Route: 048
  10. SINTROM [Suspect]
     Active Substance: ACENOCOUMAROL
     Dosage: 1 MILLIGRAM DAILY;
     Route: 048
     Dates: start: 20130307, end: 20130307
  11. DIAMICRON [Concomitant]
     Active Substance: GLICLAZIDE
     Indication: PRODUCT USED FOR UNKNOWN INDICATION
     Dosage: 30 MILLIGRAM DAILY; LONG TERM TREATMENT
     Route: 048
  12. DANCOR [Concomitant]
     Active Substance: NICORANDIL
     Indication: PRODUCT USED FOR UNKNOWN INDICATION
     Dosage: 20 MILLIGRAM DAILY; UNSPECIFIED STRENGTH, LONG TERM TREATMENT
     Route: 048
  13. NEXIUM [Concomitant]
     Active Substance: ESOMEPRAZOLE MAGNESIUM
     Indication: PRODUCT USED FOR UNKNOWN INDICATION
     Dosage: 20 MILLIGRAM DAILY; CONTINUING TREATMENT
     Route: 048
     Dates: start: 2013
  14. TOREM [Concomitant]
     Active Substance: TORSEMIDE
     Indication: PRODUCT USED FOR UNKNOWN INDICATION
     Route: 065
  15. OMEZOL [Concomitant]
     Active Substance: OMEPRAZOLE
     Indication: PRODUCT USED FOR UNKNOWN INDICATION
     Dosage: 20 MILLIGRAM DAILY; LONG TERM TREATMENT
     Route: 048
     Dates: end: 2013
  16. DUROGESIC [Concomitant]
     Active Substance: FENTANYL
     Indication: PRODUCT USED FOR UNKNOWN INDICATION
     Dosage: 600 MICROGRAM DAILY; UNSPECIFIED STRENGTH
     Route: 062
  17. SINTROM [Suspect]
     Active Substance: ACENOCOUMAROL
     Dosage: 3 MILLIGRAM DAILY;
     Route: 048
     Dates: start: 20130301, end: 20130303
  18. DIGOXIN. [Concomitant]
     Active Substance: DIGOXIN
     Indication: PRODUCT USED FOR UNKNOWN INDICATION
     Dosage: .25 MILLIGRAM DAILY; LONG TERM TREATMENT
     Route: 048
     Dates: end: 20130301
  19. SINTROM [Suspect]
     Active Substance: ACENOCOUMAROL
     Dosage: TAKEN AS NECESSARY
     Route: 048
     Dates: end: 201601
  20. METFIN [Concomitant]
     Active Substance: METFORMIN HYDROCHLORIDE
     Dosage: 1000 MILLIGRAM DAILY;
     Route: 048

REACTIONS (5)
  - International normalised ratio increased [Recovered/Resolved]
  - Post procedural haematoma [Recovered/Resolved]
  - Cardiac failure [Recovered/Resolved]
  - Bradycardia [Unknown]
  - Hyperkalaemia [Recovered/Resolved]

NARRATIVE: CASE EVENT DATE: 20130225
